FAERS Safety Report 7306269-8 (Version None)
Quarter: 2011Q1

REPORT INFORMATION
  Report Type: 
  Country: None (occurrence: None)
  Receive Date: 20110222
  Receipt Date: 20110209
  Transmission Date: 20110831
  Serious: Yes (Other)
  Sender: FDA-Public Use
  Company Number: PHHY2011US11210

PATIENT
  Sex: Female

DRUGS (1)
  1. FEMARA [Suspect]
     Dosage: 2.5 MG

REACTIONS (7)
  - DEPRESSION [None]
  - MOOD SWINGS [None]
  - PAIN [None]
  - BLOOD PRESSURE INCREASED [None]
  - OVARIAN CYST [None]
  - FATIGUE [None]
  - HOT FLUSH [None]
